FAERS Safety Report 14253097 (Version 1)
Quarter: 2017Q4

REPORT INFORMATION
  Report Type: Spontaneous
  Country: US (occurrence: US)
  Receive Date: 20171206
  Receipt Date: 20171206
  Transmission Date: 20180321
  Serious: Yes (Hospitalization)
  Sender: FDA-Public Use
  Company Number: US-ROCHE-2030786

PATIENT
  Sex: Female

DRUGS (9)
  1. CYCLOBENZAPRINE. [Concomitant]
     Active Substance: CYCLOBENZAPRINE
  2. ACTEMRA [Suspect]
     Active Substance: TOCILIZUMAB
     Indication: SENILE OSTEOPOROSIS
     Route: 058
     Dates: start: 20150305
  3. PREDNISONE. [Concomitant]
     Active Substance: PREDNISONE
  4. FOLIC ACID. [Concomitant]
     Active Substance: FOLIC ACID
  5. GABAPENTIN. [Concomitant]
     Active Substance: GABAPENTIN
  6. IBUPROFEN. [Concomitant]
     Active Substance: IBUPROFEN
  7. ALPRAZOLAM. [Concomitant]
     Active Substance: ALPRAZOLAM
  8. ARAVA [Concomitant]
     Active Substance: LEFLUNOMIDE
  9. PERCOCET [Concomitant]
     Active Substance: ACETAMINOPHEN\OXYCODONE HYDROCHLORIDE

REACTIONS (3)
  - Intentional product use issue [Unknown]
  - Off label use [Unknown]
  - Lung disorder [Unknown]
